FAERS Safety Report 12405996 (Version 1)
Quarter: 2016Q2

REPORT INFORMATION
  Report Type: Other
  Country: CL (occurrence: CL)
  Receive Date: 20160526
  Receipt Date: 20160526
  Transmission Date: 20160815
  Serious: Yes (Life-Threatening, Hospitalization)
  Sender: FDA-Public Use
  Company Number: CL-LUPIN PHARMACEUTICALS INC.-2016-02086

PATIENT
  Age: 74 Year
  Sex: Male

DRUGS (2)
  1. METFORMIN [Suspect]
     Active Substance: METFORMIN HYDROCHLORIDE
     Indication: TYPE 2 DIABETES MELLITUS
     Route: 065
  2. VILDAGLIPTIN + METFORMIN HYDROCLORIDE [Suspect]
     Active Substance: METFORMIN HYDROCHLORIDE\VILDAGLIPTIN
     Indication: TYPE 2 DIABETES MELLITUS
     Dosage: 50/1000MG
     Route: 065

REACTIONS (8)
  - Lactic acidosis [Recovered/Resolved]
  - Agitation [None]
  - Hypoglycaemia [None]
  - Disorientation [None]
  - Sinus bradycardia [None]
  - Abdominal pain [None]
  - Overdose [Unknown]
  - Hyperkalaemia [Recovered/Resolved]
